FAERS Safety Report 7705188-2 (Version None)
Quarter: 2011Q3

REPORT INFORMATION
  Report Type: 
  Country: None (occurrence: None)
  Receive Date: 20110824
  Receipt Date: 20110810
  Transmission Date: 20111222
  Serious: Yes (Other)
  Sender: FDA-Public Use
  Company Number: US-BRACCO-004885

PATIENT
  Sex: Male
  Weight: 81.82 kg

DRUGS (50)
  1. CONTRAST MEDIA [Suspect]
     Indication: ANGIOGRAM
     Dates: start: 20050304, end: 20050304
  2. CONTRAST MEDIA [Suspect]
     Dates: start: 20040504
  3. PROHANCE [Suspect]
     Indication: NUCLEAR MAGNETIC RESONANCE IMAGING BRAIN
     Dates: start: 20030508, end: 20030508
  4. MAGNEVIST [Suspect]
     Indication: NUCLEAR MAGNETIC RESONANCE IMAGING ABDOMINAL
     Dates: start: 20050304, end: 20050304
  5. PROGRAF [Concomitant]
  6. ASPIRIN [Concomitant]
  7. NEURONTIN [Concomitant]
  8. JANUVIA [Concomitant]
  9. DIOVAN [Concomitant]
  10. ALLOPURINOL [Concomitant]
  11. ASPIRIN [Concomitant]
  12. PROHANCE [Suspect]
     Indication: ANGIOGRAM
     Dates: start: 20031116, end: 20031116
  13. MAGNEVIST [Suspect]
     Indication: INVESTIGATION
     Dates: start: 20050304, end: 20050304
  14. GABAPENTIN [Concomitant]
  15. NEPHROVITE [Concomitant]
  16. PREDNISONE TAB [Concomitant]
  17. FLOMAX [Concomitant]
  18. DEMADEX [Concomitant]
  19. CONTRAST MEDIA [Suspect]
     Dates: start: 20031116
  20. CONTRAST MEDIA [Suspect]
     Dates: start: 20050315
  21. COREG [Concomitant]
  22. OMNISCAN [Suspect]
     Indication: ANGIOGRAM
     Dates: start: 20040504, end: 20040504
  23. AMBIEN [Concomitant]
  24. STARLIX [Concomitant]
  25. CONTRAST MEDIA [Suspect]
     Indication: CORONARY ARTERY DISEASE
     Dates: start: 20031010
  26. CONTRAST MEDIA [Suspect]
     Indication: CARDIAC FAILURE CONGESTIVE
     Dates: start: 19901213
  27. CONTRAST MEDIA [Suspect]
     Indication: RENAL FAILURE CHRONIC
     Dates: start: 20001026
  28. NOVOLOG [Concomitant]
     Dosage: DOSE: 70/30
  29. RANEXA [Concomitant]
  30. IMDUR [Concomitant]
  31. RENAGEL [Concomitant]
  32. OMNISCAN [Suspect]
     Indication: NUCLEAR MAGNETIC RESONANCE IMAGING
     Dates: start: 20030402
  33. CONTRAST MEDIA [Suspect]
     Indication: RENAL ARTERY STENOSIS
     Dates: start: 20010904
  34. CELLCEPT [Concomitant]
  35. FERROUS SULFATE TAB [Concomitant]
  36. LIPITOR [Concomitant]
  37. PIOGLITAZONE [Concomitant]
  38. VISIPAQUE [Suspect]
     Indication: ANGIOPLASTY
     Dates: start: 20050315, end: 20050315
  39. MAGNEVIST [Suspect]
     Indication: ANGIOPLASTY
     Dates: start: 20050315, end: 20050315
  40. ARANESP [Concomitant]
  41. CONTRAST MEDIA [Suspect]
     Indication: NUCLEAR MAGNETIC RESONANCE IMAGING
     Dates: start: 20030402
  42. PLAVIX [Concomitant]
  43. INDERAL [Concomitant]
  44. LASIX [Concomitant]
  45. METOPROLOL [Concomitant]
  46. MAGNEVIST [Suspect]
     Indication: NUCLEAR MAGNETIC RESONANCE IMAGING
     Dates: start: 20040504, end: 20040504
  47. COZAAR [Concomitant]
  48. LOPRESSOR [Concomitant]
  49. DILTIAZEM [Concomitant]
  50. AVAPRO [Concomitant]

REACTIONS (1)
  - NEPHROGENIC SYSTEMIC FIBROSIS [None]
